FAERS Safety Report 5449655-3 (Version None)
Quarter: 2007Q3

REPORT INFORMATION
  Report Type: 
  Country: None (occurrence: None)
  Receive Date: 20070910
  Receipt Date: 20070831
  Transmission Date: 20080115
  Serious: Yes (Death, Life-Threatening)
  Sender: FDA-Public Use
  Company Number: 2007US002048

PATIENT
  Age: 69 Year
  Sex: Male

DRUGS (20)
  1. AMBISOME [Suspect]
     Indication: SYSTEMIC CANDIDA
     Dosage: 350 MG, BID, IV NOS
     Route: 042
     Dates: start: 20070815, end: 20070816
  2. VANCOMYCIN HYDROCHLORIDE [Suspect]
     Indication: SYSTEMIC CANDIDA
     Dosage: 2 MG, BID
     Dates: start: 20070815, end: 20070816
  3. IMIPENEM (IMIPENEM) [Concomitant]
  4. HALOPERIDOL (HALOPERIDOL DECANOATE) [Concomitant]
  5. INSULIN (INSULIN HUMAN) [Concomitant]
  6. CARVEDILOL [Concomitant]
  7. FUROSEMIDE (FUROSEMIDE SODIUM) [Concomitant]
  8. VITAMINS [Concomitant]
  9. CAPTOPRIL [Concomitant]
  10. OMEPRAZOLE [Concomitant]
  11. TOBRAMYCIN [Concomitant]
  12. NYSTATIN [Concomitant]
  13. ASPIRIN [Concomitant]
  14. CALCIPARINE [Concomitant]
  15. SANDOSTATIN [Concomitant]
  16. PROPOFOL [Concomitant]
  17. FENTANYL [Concomitant]
  18. DOPAMINE HCL [Concomitant]
  19. NOREPINEPHRINE BITARTRATE [Concomitant]
  20. CIPROFLOXACIN [Concomitant]

REACTIONS (3)
  - GENERAL PHYSICAL HEALTH DETERIORATION [None]
  - LEUKOPENIA [None]
  - PROTEUS INFECTION [None]
